FAERS Safety Report 21887617 (Version 1)
Quarter: 2023Q1

REPORT INFORMATION
  Report Type: Spontaneous
  Country: JP (occurrence: JP)
  Receive Date: 20230120
  Receipt Date: 20230120
  Transmission Date: 20230417
  Serious: Yes (Death, Other)
  Sender: FDA-Public Use
  Company Number: JP-TOLMAR, INC.-23JP038492

PATIENT
  Age: 67 Year
  Sex: Male

DRUGS (7)
  1. ELIGARD [Suspect]
     Active Substance: LEUPROLIDE ACETATE
     Indication: Prostate cancer metastatic
     Dosage: UNK
  2. ENZALUTAMIDE [Suspect]
     Active Substance: ENZALUTAMIDE
     Indication: Prostate cancer metastatic
     Dosage: UNK
  3. DOCETAXEL [Suspect]
     Active Substance: DOCETAXEL
     Indication: Disease progression
     Dosage: 70 MILLIGRAM PER SQUARE METRE
  4. PREDNISOLONE [Suspect]
     Active Substance: PREDNISOLONE
     Indication: Disease progression
     Dosage: 10 MILLIGRAM, QD
  5. RADIATION THERAPY [Suspect]
     Active Substance: RADIATION THERAPY
     Indication: Disease progression
     Dosage: (RT, 29 GY/13FR) TO TH3, TH 12 AND PELVIS
  6. RADIATION THERAPY [Suspect]
     Active Substance: RADIATION THERAPY
     Indication: Pain
  7. OLAPARIB [Suspect]
     Active Substance: OLAPARIB
     Indication: Neuroendocrine carcinoma of prostate
     Dosage: 500 MILLIGRAM, QD

REACTIONS (5)
  - Prostate cancer [Fatal]
  - Neuroendocrine carcinoma [Unknown]
  - Interstitial lung disease [Unknown]
  - Pain [Unknown]
  - Anaemia [Unknown]
